FAERS Safety Report 21091926 (Version 1)
Quarter: 2022Q3

REPORT INFORMATION
  Report Type: Spontaneous
  Country: US (occurrence: US)
  Receive Date: 20220717
  Receipt Date: 20220717
  Transmission Date: 20221027
  Serious: Yes (Hospitalization, Other)
  Sender: FDA-Public Use
  Company Number: US-009507513-2207USA004405

PATIENT
  Age: 37 Year
  Sex: Female
  Weight: 65.1 kg

DRUGS (3)
  1. KEYTRUDA [Suspect]
     Active Substance: PEMBROLIZUMAB
  2. AVELUMAB [Suspect]
     Active Substance: AVELUMAB
     Indication: Neoplasm
     Dosage: EVERY 2 WEEKS
     Route: 041
     Dates: end: 20190809
  3. TALAZOPARIB [Suspect]
     Active Substance: TALAZOPARIB
     Indication: Neoplasm
     Dosage: ONCE DAILY
     Route: 048
     Dates: end: 20190822

REACTIONS (1)
  - Enterocolitis [Recovered/Resolved]

NARRATIVE: CASE EVENT DATE: 20190930
